FAERS Safety Report 4698875-4 (Version None)
Quarter: 2005Q2

REPORT INFORMATION
  Report Type: 
  Country: None (occurrence: None)
  Receive Date: 20050624
  Receipt Date: 20050614
  Transmission Date: 20051028
  Serious: Yes (Death)
  Sender: FDA-Public Use
  Company Number: PHBS2005GB08846

PATIENT
  Age: 62 Year
  Sex: Female

DRUGS (1)
  1. OCTREOTIDE ACETATE [Suspect]
     Indication: THYROID CANCER METASTATIC
     Route: 065

REACTIONS (4)
  - DRUG INEFFECTIVE [None]
  - PATHOLOGICAL FRACTURE [None]
  - THYROGLOBULIN INCREASED [None]
  - THYROID CANCER METASTATIC [None]
